FAERS Safety Report 22139994 (Version 1)
Quarter: 2023Q1

REPORT INFORMATION
  Report Type: Report from Study
  Country: JP (occurrence: JP)
  Receive Date: 20230327
  Receipt Date: 20230327
  Transmission Date: 20230418
  Serious: Yes (Death)
  Sender: FDA-Public Use
  Company Number: JP-AMGEN-JPNNI2023051585

PATIENT
  Age: 65 Year
  Sex: Male
  Weight: 62 kg

DRUGS (4)
  1. IVABRADINE [Suspect]
     Active Substance: IVABRADINE
     Indication: Cardiac failure chronic
     Dosage: 2.5 MILLIGRAM, Q12H
     Route: 048
     Dates: start: 20220128, end: 20220829
  2. BISOPROLOL FUMARATE [Concomitant]
     Active Substance: BISOPROLOL FUMARATE
     Indication: Cardiac failure chronic
     Dosage: 1.25 MILLIGRAM, QD
     Route: 048
  3. ENALAPRIL [Concomitant]
     Active Substance: ENALAPRIL
     Indication: Cardiac failure chronic
     Dosage: UNK
     Route: 048
  4. PIMOBENDAN [Concomitant]
     Active Substance: PIMOBENDAN
     Indication: Cardiac failure chronic
     Dosage: UNK
     Route: 048

REACTIONS (2)
  - Death [Fatal]
  - Contraindicated product administered [Fatal]

NARRATIVE: CASE EVENT DATE: 20220128
